FAERS Safety Report 4389963-0 (Version None)
Quarter: 2004Q2

REPORT INFORMATION
  Report Type: 
  Country: None (occurrence: None)
  Receive Date: 20040630
  Receipt Date: 20040616
  Transmission Date: 20050107
  Serious: Yes (Hospitalization)
  Sender: FDA-Public Use
  Company Number: PERI00204002079

PATIENT
  Age: 87 Year
  Sex: Male

DRUGS (2)
  1. COVERSYL (PERINDOPRIL) [Suspect]
     Indication: CEREBROVASCULAR ACCIDENT
     Dosage: DAILY PO
     Route: 048
     Dates: end: 20040601
  2. ASPIRIN [Concomitant]

REACTIONS (5)
  - CONFUSIONAL STATE [None]
  - GENERAL PHYSICAL HEALTH DETERIORATION [None]
  - HYPONATRAEMIA [None]
  - LOSS OF CONSCIOUSNESS [None]
  - ORTHOSTATIC HYPOTENSION [None]
